FAERS Safety Report 6278371-3 (Version None)
Quarter: 2009Q3

REPORT INFORMATION
  Report Type: 
  Country: None (occurrence: None)
  Receive Date: 20090722
  Receipt Date: 20090707
  Transmission Date: 20100115
  Serious: Yes (Other)
  Sender: FDA-Public Use
  Company Number: CA-ASTRAZENECA-2009UW01143

PATIENT
  Age: 62 Year
  Sex: Male

DRUGS (1)
  1. XYLOCAINE [Suspect]
     Route: 061

REACTIONS (1)
  - FOREIGN BODY TRAUMA [None]
